FAERS Safety Report 7110410-X (Version None)
Quarter: 2010Q4

REPORT INFORMATION
  Report Type: 
  Country: None (occurrence: None)
  Receive Date: 20101118
  Receipt Date: 20101112
  Transmission Date: 20110411
  Serious: Yes (Life-Threatening, Hospitalization, Other)
  Sender: FDA-Public Use
  Company Number: PHHY2010DE60335

PATIENT
  Age: 57 Year
  Sex: Female
  Weight: 105 kg

DRUGS (8)
  1. DICLOFENAC SODIUM [Suspect]
     Indication: BONE PAIN
     Dosage: 75 MG, BID
     Route: 048
     Dates: start: 20041101, end: 20100525
  2. RAMIPRIL [Suspect]
     Indication: HYPERTENSION
     Dosage: 2.5 MG PER DAY
     Route: 048
     Dates: start: 20080101, end: 20100528
  3. TRAMADOLOR ^HEXAL^ [Concomitant]
     Dosage: 100 MG, TID
     Route: 048
     Dates: start: 20070801, end: 20100528
  4. METFORMIN [Concomitant]
     Indication: TYPE 2 DIABETES MELLITUS
     Dosage: 1850 MG, QD
     Route: 048
     Dates: start: 20080101, end: 20100529
  5. GABAPENTIN [Concomitant]
     Indication: NEUROBORRELIOSIS
     Dosage: 600 MG, QID
     Route: 048
     Dates: start: 20070101, end: 20100525
  6. RESTEX [Concomitant]
     Indication: RESTLESS LEGS SYNDROME
     Dosage: 1 DF, QD
     Route: 048
     Dates: start: 20060101, end: 20100525
  7. RESTEX - SLOW RELEASE [Concomitant]
     Indication: RESTLESS LEGS SYNDROME
     Dosage: 1 DF, QD
     Route: 048
     Dates: start: 20060101, end: 20100525
  8. VIANI [Concomitant]
     Indication: ASTHMA
     Dosage: 1 DF, BID
     Route: 055
     Dates: start: 20050101, end: 20100525

REACTIONS (9)
  - BLOOD CREATININE INCREASED [None]
  - BLOOD UREA INCREASED [None]
  - DYSPNOEA [None]
  - HYPERKALAEMIA [None]
  - OEDEMA [None]
  - RENAL FAILURE ACUTE [None]
  - RESPIRATORY FAILURE [None]
  - SEPTIC SHOCK [None]
  - WEIGHT INCREASED [None]
